FAERS Safety Report 12977876 (Version 3)
Quarter: 2016Q4

REPORT INFORMATION
  Report Type: Spontaneous
  Country: GH (occurrence: GH)
  Receive Date: 20161128
  Receipt Date: 20161226
  Transmission Date: 20170207
  Serious: Yes (Death, Hospitalization, Other)
  Sender: FDA-Public Use
  Company Number: PHHY2016GH162356

PATIENT
  Sex: Female

DRUGS (6)
  1. ACYCLOVIR. [Concomitant]
     Active Substance: ACYCLOVIR
     Indication: PRODUCT USED FOR UNKNOWN INDICATION
     Route: 065
  2. ARTESUNATE [Concomitant]
     Active Substance: ARTESUNATE
     Indication: PRODUCT USED FOR UNKNOWN INDICATION
     Route: 065
  3. BIOFERON [Concomitant]
     Indication: PRODUCT USED FOR UNKNOWN INDICATION
     Route: 065
  4. COARTEM [Suspect]
     Active Substance: ARTEMETHER\LUMEFANTRINE
     Indication: CEREBRAL MALARIA
     Dosage: UNK
     Route: 048
  5. PARACETAMOL [Concomitant]
     Active Substance: ACETAMINOPHEN
     Indication: PRODUCT USED FOR UNKNOWN INDICATION
     Route: 065
  6. OXYGEN. [Concomitant]
     Active Substance: OXYGEN
     Indication: PRODUCT USED FOR UNKNOWN INDICATION
     Route: 065

REACTIONS (19)
  - Glucose-6-phosphate dehydrogenase deficiency [Unknown]
  - Decreased appetite [Unknown]
  - Coma [Unknown]
  - Secretion discharge [Recovering/Resolving]
  - Pyrexia [Recovering/Resolving]
  - Gingival bleeding [Unknown]
  - Delirium [Recovering/Resolving]
  - Jaundice [Recovering/Resolving]
  - Vomiting [Recovering/Resolving]
  - Hypoaesthesia [Recovering/Resolving]
  - Dyspnoea [Fatal]
  - Anaemia [Unknown]
  - Dizziness [Recovering/Resolving]
  - Asthenia [Unknown]
  - Blood glucose increased [Unknown]
  - Haematological malignancy [Fatal]
  - Malaise [Unknown]
  - Depressed level of consciousness [Unknown]
  - Seizure [Recovering/Resolving]

NARRATIVE: CASE EVENT DATE: 20161116
